FAERS Safety Report 7342964-2 (Version None)
Quarter: 2011Q1

REPORT INFORMATION
  Report Type: 
  Country: None (occurrence: None)
  Receive Date: 20110308
  Receipt Date: 20110308
  Transmission Date: 20110831
  Serious: Yes (Hospitalization)
  Sender: FDA-Public Use
  Company Number: None

PATIENT
  Age: 51 Year
  Sex: Male
  Weight: 94 kg

DRUGS (2)
  1. SORAFENIB [Suspect]
     Indication: HEPATIC NEOPLASM MALIGNANT
     Dosage: 400 MG BID PO
     Route: 048
     Dates: start: 20110128, end: 20110203
  2. SORAFENIB [Suspect]
     Indication: VASCULAR OPERATION
     Dosage: 400 MG BID PO
     Route: 048
     Dates: start: 20110128, end: 20110203

REACTIONS (1)
  - TUMOUR HAEMORRHAGE [None]
